FAERS Safety Report 7556696-9 (Version None)
Quarter: 2011Q2

REPORT INFORMATION
  Report Type: 
  Country: None (occurrence: None)
  Receive Date: 20110620
  Receipt Date: 20110615
  Transmission Date: 20111010
  Serious: Yes (Other)
  Sender: FDA-Public Use
  Company Number: US-PFIZER INC-2011131632

PATIENT
  Sex: Male
  Weight: 63 kg

DRUGS (2)
  1. XALATAN [Suspect]
     Indication: INTRAOCULAR PRESSURE TEST ABNORMAL
     Dosage: UNK, DAILY
     Route: 047
  2. TIMOLOL [Concomitant]
     Indication: INTRAOCULAR PRESSURE TEST ABNORMAL
     Dosage: 1 GTT, 2X/DAY
     Route: 047

REACTIONS (3)
  - BLOOD CHOLESTEROL INCREASED [None]
  - HYPERTENSION [None]
  - PROSTATIC DISORDER [None]
